FAERS Safety Report 20609643 (Version 1)
Quarter: 2022Q1

REPORT INFORMATION
  Report Type: Other
  Country: None (occurrence: EG)
  Receive Date: 20220318
  Receipt Date: 20220318
  Transmission Date: 20220423
  Serious: Yes (Death, Life-Threatening, Hospitalization, Other)
  Sender: FDA-Public Use
  Company Number: EG-Caplin Steriles Limited-2126905

PATIENT
  Age: 4 Year
  Sex: Male
  Weight: 18 kg

DRUGS (4)
  1. TRANEXAMIC ACID [Suspect]
     Active Substance: TRANEXAMIC ACID
     Indication: Haemorrhage prophylaxis
     Route: 065
  2. PROPOFOL [Concomitant]
     Active Substance: PROPOFOL
     Dates: start: 2019
  3. FENTANYL [Concomitant]
     Active Substance: FENTANYL
  4. SEVOFLURANE [Concomitant]
     Active Substance: SEVOFLURANE

REACTIONS (6)
  - Cardiac arrest [Fatal]
  - Acute kidney injury [Unknown]
  - Metabolic acidosis [Unknown]
  - Hyperkalaemia [Unknown]
  - Status epilepticus [Unknown]
  - Haemodynamic instability [Unknown]
